FAERS Safety Report 6775772-1 (Version None)
Quarter: 2010Q2

REPORT INFORMATION
  Report Type: 
  Country: None (occurrence: None)
  Receive Date: 20100617
  Receipt Date: 20100609
  Transmission Date: 20101027
  Serious: Yes (Hospitalization, Other)
  Sender: FDA-Public Use
  Company Number: FR-ABBOTT-10P-056-0650150-00

PATIENT
  Sex: Male

DRUGS (1)
  1. HUMIRA [Suspect]
     Indication: PSORIASIS
     Route: 058
     Dates: start: 20100303

REACTIONS (5)
  - ASTHENIA [None]
  - BETA HAEMOLYTIC STREPTOCOCCAL INFECTION [None]
  - ENDOCARDITIS [None]
  - MITRAL VALVE DISEASE [None]
  - WEIGHT DECREASED [None]
